FAERS Safety Report 5659652-0 (Version None)
Quarter: 2008Q1

REPORT INFORMATION
  Report Type: 
  Country: None (occurrence: None)
  Receive Date: 20080311
  Receipt Date: 20080229
  Transmission Date: 20080703
  Serious: Yes (Disabling, Other)
  Sender: FDA-Public Use
  Company Number: US-ROCHE-509523

PATIENT
  Sex: Male
  Weight: 72.6 kg

DRUGS (8)
  1. ACCUTANE [Suspect]
     Indication: ACNE
     Route: 065
     Dates: start: 19970625, end: 19970707
  2. ACCUTANE [Suspect]
     Route: 065
     Dates: start: 19970707
  3. ACCUTANE [Suspect]
     Dosage: 1 DOSE FORM ALTERNATING DAYS WITH 2 DOSE FORMS
     Route: 065
     Dates: start: 19970905, end: 19980102
  4. ACCUTANE [Suspect]
     Route: 065
     Dates: start: 19980421
  5. ACCUTANE [Suspect]
     Route: 065
     Dates: start: 19980717
  6. ACCUTANE [Suspect]
     Route: 065
     Dates: start: 19980801
  7. ACCUTANE [Suspect]
     Dosage: 1 DOSE FORM ALTERNATING DAYS WITH 2 DOSE FORMS
     Route: 065
     Dates: start: 19980914, end: 19981116
  8. ACCUTANE [Suspect]
     Route: 065
     Dates: start: 19990203, end: 19990621

REACTIONS (13)
  - ACNE [None]
  - ANXIETY [None]
  - COLITIS ULCERATIVE [None]
  - DEPRESSION [None]
  - DYSURIA [None]
  - HELICOBACTER INFECTION [None]
  - HYPERKERATOSIS [None]
  - INFLAMMATORY BOWEL DISEASE [None]
  - LIP DRY [None]
  - PROCTOCOLITIS [None]
  - PROSTATITIS [None]
  - RECTAL POLYP [None]
  - URINARY TRACT INFECTION [None]
